FAERS Safety Report 13112841 (Version 1)
Quarter: 2017Q1

REPORT INFORMATION
  Report Type: Spontaneous
  Country: US (occurrence: US)
  Receive Date: 20170112
  Receipt Date: 20170112
  Transmission Date: 20170428
  Serious: Yes (Death)
  Sender: FDA-Public Use
  Company Number: None

PATIENT
  Age: 80 Year
  Sex: Female
  Weight: 53.8 kg

DRUGS (8)
  1. PSEUDOEPHEDRINE HCL [Concomitant]
     Active Substance: PSEUDOEPHEDRINE HYDROCHLORIDE
  2. OMEPRAZOLE. [Concomitant]
     Active Substance: OMEPRAZOLE
  3. YTTRIUM-90 [Suspect]
     Active Substance: YTTRIUM Y-90
     Indication: HEPATIC CANCER
     Dates: start: 20150617, end: 20150617
  4. ROPINIROLE. [Concomitant]
     Active Substance: ROPINIROLE
  5. NEURONTIN [Concomitant]
     Active Substance: GABAPENTIN
  6. LORATADINE. [Concomitant]
     Active Substance: LORATADINE
  7. CENTRUM SILVER WOMEN 50+ CALCIUM 500 MG (WITH VITAMIN D 400 IU) [Concomitant]
  8. PREMARIN [Concomitant]
     Active Substance: ESTROGENS, CONJUGATED

REACTIONS (1)
  - Radiation hepatitis [None]

NARRATIVE: CASE EVENT DATE: 20150617
